FAERS Safety Report 15135170 (Version 1)
Quarter: 2018Q3

REPORT INFORMATION
  Report Type: Spontaneous
  Country: US (occurrence: US)
  Receive Date: 20180712
  Receipt Date: 20180712
  Transmission Date: 20181010
  Serious: No
  Sender: FDA-Public Use
  Company Number: US-ABBVIE-18K-163-2386346-00

PATIENT
  Age: 78 Year
  Sex: Male

DRUGS (9)
  1. VENCLEXTA [Suspect]
     Active Substance: VENETOCLAX
     Indication: CHROMOSOMAL DELETION
     Route: 048
     Dates: start: 20180224, end: 20180302
  2. FUROSEMIDE. [Concomitant]
     Active Substance: FUROSEMIDE
     Indication: OEDEMA
  3. VENCLEXTA [Suspect]
     Active Substance: VENETOCLAX
     Route: 048
     Dates: start: 20180303, end: 20180309
  4. VENCLEXTA [Suspect]
     Active Substance: VENETOCLAX
     Indication: CHRONIC LYMPHOCYTIC LEUKAEMIA
     Route: 048
     Dates: start: 20180217, end: 20180223
  5. VENCLEXTA [Suspect]
     Active Substance: VENETOCLAX
     Route: 048
     Dates: start: 20180310, end: 20180316
  6. VENCLEXTA [Suspect]
     Active Substance: VENETOCLAX
     Route: 048
     Dates: start: 20180317, end: 201805
  7. VENCLEXTA [Suspect]
     Active Substance: VENETOCLAX
     Route: 048
     Dates: start: 201805
  8. ALLOPURINOL. [Concomitant]
     Active Substance: ALLOPURINOL
     Indication: PROPHYLAXIS
  9. METHIMAZOLE. [Concomitant]
     Active Substance: METHIMAZOLE
     Indication: HYPERTHYROIDISM

REACTIONS (1)
  - White blood cell count decreased [Recovered/Resolved]

NARRATIVE: CASE EVENT DATE: 201804
